FAERS Safety Report 18058455 (Version 2)
Quarter: 2021Q3

REPORT INFORMATION
  Report Type: Spontaneous
  Country: GB (occurrence: GB)
  Receive Date: 20200723
  Receipt Date: 20210701
  Transmission Date: 20211014
  Serious: Yes (Other)
  Sender: FDA-Public Use
  Company Number: NVSC2020GB201671

PATIENT
  Age: 6 Decade
  Sex: Male

DRUGS (8)
  1. FOSCARNET [Suspect]
     Active Substance: FOSCARNET
     Indication: HERPES SIMPLEX
     Dosage: UNK
     Route: 065
  2. ANTITHYMOCYTE IMMUNOGLOBULIN (RABBIT) [Suspect]
     Active Substance: LAPINE T-LYMPHOCYTE IMMUNE GLOBULIN
     Indication: IMMUNOSUPPRESSANT DRUG THERAPY
     Dosage: UNK
     Route: 065
  3. GANCICLOVIR. [Suspect]
     Active Substance: GANCICLOVIR
     Indication: HERPES SIMPLEX
     Dosage: UNK
     Route: 065
  4. BUSULPHAN [Suspect]
     Active Substance: BUSULFAN
     Indication: IMMUNOSUPPRESSANT DRUG THERAPY
     Dosage: 3.2 MG/KG
     Route: 065
  5. CYCLOSPORIN A [Suspect]
     Active Substance: CYCLOSPORINE
     Indication: PROPHYLAXIS AGAINST GRAFT VERSUS HOST DISEASE
     Dosage: 3 MG/KG DAILY; STARTING ON DAY 1
     Route: 042
  6. VALACICLOVIR HYDROCHLORIDE [Suspect]
     Active Substance: VALACYCLOVIR HYDROCHLORIDE
     Indication: HERPES SIMPLEX
     Dosage: UNK
     Route: 065
  7. FLUDARABINE PHOSPHATE. [Suspect]
     Active Substance: FLUDARABINE PHOSPHATE
     Indication: IMMUNOSUPPRESSANT DRUG THERAPY
     Dosage: UNK
     Route: 065
  8. ACICLOVIR [Suspect]
     Active Substance: ACYCLOVIR
     Indication: ANTIVIRAL PROPHYLAXIS
     Dosage: 15 MG/KG DAILY;
     Route: 042

REACTIONS (6)
  - Encephalitis [Unknown]
  - Pneumonitis [Unknown]
  - Pathogen resistance [Unknown]
  - Renal impairment [Unknown]
  - Pneumocystis jirovecii pneumonia [Unknown]
  - Herpes simplex [Not Recovered/Not Resolved]
